FAERS Safety Report 11174593 (Version 1)
Quarter: 2015Q2

REPORT INFORMATION
  Report Type: Spontaneous
  Country: AU (occurrence: None)
  Receive Date: 20150605
  Receipt Date: 20150605
  Transmission Date: 20150821
  Serious: Yes (Hospitalization, Other)
  Sender: FDA-Public Use
  Company Number: 2015-11457

PATIENT
  Age: 84 Year
  Sex: Female

DRUGS (1)
  1. EYLEA [Suspect]
     Active Substance: AFLIBERCEPT
     Indication: NEOVASCULAR AGE-RELATED MACULAR DEGENERATION
     Route: 031

REACTIONS (7)
  - Arrhythmia [None]
  - Visual impairment [None]
  - Rectal haemorrhage [None]
  - Ocular hyperaemia [None]
  - Eye pain [None]
  - Vision blurred [None]
  - Product use issue [None]

NARRATIVE: CASE EVENT DATE: 20150526
